FAERS Safety Report 6081542-2 (Version None)
Quarter: 2009Q1

REPORT INFORMATION
  Report Type: 
  Country: None (occurrence: None)
  Receive Date: 20090213
  Receipt Date: 20090202
  Transmission Date: 20090719
  Serious: Yes (Other)
  Sender: FDA-Public Use
  Company Number: 100#03#2009-00408

PATIENT
  Age: 43 Year
  Sex: Male

DRUGS (8)
  1. FLUCONAZOLE [Suspect]
     Indication: ORAL CANDIDIASIS
  2. SIMVASTATIN [Suspect]
     Indication: DRUG USE FOR UNKNOWN INDICATION
  3. CLOPIDOGREL (CLOPIDROGEL) [Concomitant]
  4. GLICLAZIDE (GLICLAZIDE) [Concomitant]
  5. METFORMIN HCL [Concomitant]
  6. ATENOLOL [Concomitant]
  7. RAMIPRIL [Concomitant]
  8. SULFAMETHOXAZOLE AND TRIMETHOPRIM [Concomitant]

REACTIONS (12)
  - BLOOD POTASSIUM INCREASED [None]
  - BLOOD SODIUM DECREASED [None]
  - CULTURE POSITIVE [None]
  - CULTURE URINE POSITIVE [None]
  - DRUG INTERACTION [None]
  - HEPATITIS B SURFACE ANTIGEN POSITIVE [None]
  - HYPOREFLEXIA [None]
  - LUNG CONSOLIDATION [None]
  - RENAL FAILURE ACUTE [None]
  - RESPIRATORY FAILURE [None]
  - RHABDOMYOLYSIS [None]
  - TUBERCULOSIS [None]
